FAERS Safety Report 7905830-7 (Version None)
Quarter: 2011Q4

REPORT INFORMATION
  Report Type: 
  Country: None (occurrence: None)
  Receive Date: 20111108
  Receipt Date: 20111024
  Transmission Date: 20120403
  Serious: Yes (Life-Threatening, Hospitalization, Other)
  Sender: FDA-Public Use
  Company Number: 2011MA015519

PATIENT
  Age: 13 Year
  Sex: Male

DRUGS (4)
  1. CEFOTAXIME [Suspect]
  2. METAMIZOL [Suspect]
  3. DEXAMETHASONE [Suspect]
  4. FEVERALL [Suspect]
     Route: 054

REACTIONS (1)
  - STEVENS-JOHNSON SYNDROME [None]
